FAERS Safety Report 9074965 (Version 1)
Quarter: 2013Q1

REPORT INFORMATION
  Report Type: Spontaneous
  Country: US (occurrence: US)
  Receive Date: 20130129
  Receipt Date: 20130129
  Transmission Date: 20140127
  Serious: Yes (Other)
  Sender: FDA-Public Use
  Company Number: US-TEVA-354903USA

PATIENT
  Sex: Female

DRUGS (1)
  1. MEDROXYPROGESTERONE [Suspect]
     Indication: MENORRHAGIA
     Route: 048
     Dates: start: 200610

REACTIONS (6)
  - Retinal vein occlusion [Not Recovered/Not Resolved]
  - Retinal ischaemia [Not Recovered/Not Resolved]
  - Thrombosis [Unknown]
  - Blindness unilateral [Unknown]
  - Blood pressure increased [Unknown]
  - Fall [Unknown]
